FAERS Safety Report 9242313 (Version 2)
Quarter: 2013Q3

REPORT INFORMATION
  Report Type: Report from Study
  Country: US (occurrence: US)
  Receive Date: 20130419
  Receipt Date: 20130725
  Transmission Date: 20140515
  Serious: Yes (Hospitalization)
  Sender: FDA-Public Use
  Company Number: US-ABBOTT-13P-163-1076050-00

PATIENT
  Age: 61 Year
  Sex: Female
  Weight: 85.35 kg

DRUGS (14)
  1. HUMIRA [Suspect]
     Indication: CROHN^S DISEASE
     Dosage: LOADING DOSE
     Dates: start: 20130314, end: 20130314
  2. HUMIRA [Suspect]
     Dates: start: 20130330, end: 20130330
  3. HUMIRA [Suspect]
  4. NICOTINE PATCH [Suspect]
     Indication: EX-TOBACCO USER
     Route: 062
     Dates: start: 20130306
  5. PENTASA [Concomitant]
     Indication: CROHN^S DISEASE
     Dates: start: 2003
  6. NEXIUM [Concomitant]
     Indication: GASTROOESOPHAGEAL REFLUX DISEASE
     Route: 048
  7. NEURONTIN [Concomitant]
     Indication: HERPES ZOSTER
     Route: 048
  8. NEURONTIN [Concomitant]
     Indication: NEURALGIA
  9. BENTYL [Concomitant]
     Indication: ABDOMINAL PAIN
  10. WELLBUTRIN [Concomitant]
     Indication: DEPRESSION
     Route: 048
  11. HYDROCODONE W/ACETAMINOPHEN [Concomitant]
     Indication: PAIN
     Dosage: 7.5/500 MG - EVERY 6 HRS AS NEEDED
     Route: 048
  12. VITAMIN D [Concomitant]
     Indication: VITAMIN SUPPLEMENTATION
  13. ZINC [Concomitant]
     Indication: MINERAL SUPPLEMENTATION
  14. XANAX [Concomitant]
     Dosage: EVERY 8 HRS
     Route: 048

REACTIONS (3)
  - Blood magnesium decreased [Recovered/Resolved]
  - Diarrhoea [Recovered/Resolved]
  - Blood calcium decreased [Recovered/Resolved]
